FAERS Safety Report 15804609 (Version 1)
Quarter: 2019Q1

REPORT INFORMATION
  Report Type: Spontaneous
  Country: US (occurrence: US)
  Receive Date: 20190109
  Receipt Date: 20190109
  Transmission Date: 20190417
  Serious: No
  Sender: FDA-Public Use
  Company Number: US-SLATE RUN PHARMACEUTICALS-SLTR-AE-18-14

PATIENT
  Age: 78 Year
  Sex: Male

DRUGS (6)
  1. NIFEDIPINE. [Concomitant]
     Active Substance: NIFEDIPINE
  2. PRAVASTATIN. [Concomitant]
     Active Substance: PRAVASTATIN
  3. PROPRANOLOL [Concomitant]
     Active Substance: PROPRANOLOL HYDROCHLORIDE
  4. RANITIDINE. [Concomitant]
     Active Substance: RANITIDINE
  5. 99204 ASPIRIN [Concomitant]
  6. BUPROPION HYDROCHLORIDE ER TABLET USP [Suspect]
     Active Substance: BUPROPION HYDROCHLORIDE
     Indication: DEPRESSION

REACTIONS (1)
  - Subacute cutaneous lupus erythematosus [Recovered/Resolved]
